FAERS Safety Report 23305127 (Version 2)
Quarter: 2023Q4

REPORT INFORMATION
  Report Type: Spontaneous
  Country: BG (occurrence: BG)
  Receive Date: 20231218
  Receipt Date: 20231220
  Transmission Date: 20240109
  Serious: Yes (Hospitalization, Other)
  Sender: FDA-Public Use
  Company Number: BG-862174955-ML2023-07162

PATIENT
  Age: 46 Year
  Sex: Male

DRUGS (3)
  1. METFORMIN [Suspect]
     Active Substance: METFORMIN HYDROCHLORIDE
     Indication: Type 2 diabetes mellitus
     Dosage: 3 X 1000MG
  2. LIRAGLUTIDE [Suspect]
     Active Substance: LIRAGLUTIDE
     Indication: Type 2 diabetes mellitus
     Dosage: SC LIRAGLUTIDE [SAXENDA] 3MG PER DAY
     Route: 058
  3. RAMIPRIL [Concomitant]
     Active Substance: RAMIPRIL
     Indication: Product used for unknown indication

REACTIONS (13)
  - Acute kidney injury [Recovering/Resolving]
  - Hypokalaemia [Recovering/Resolving]
  - Hyperuricaemia [Recovering/Resolving]
  - Dehydration [Recovering/Resolving]
  - Blood glucose increased [Recovering/Resolving]
  - Depressed mood [Recovering/Resolving]
  - Haemoconcentration [Recovering/Resolving]
  - Respiratory alkalosis [Recovering/Resolving]
  - Asthenia [Recovering/Resolving]
  - Azotaemia [Recovering/Resolving]
  - Hyperhidrosis [Recovering/Resolving]
  - Ketonuria [Recovering/Resolving]
  - Vomiting [Recovering/Resolving]
